FAERS Safety Report 13893636 (Version 1)
Quarter: 2017Q3

REPORT INFORMATION
  Report Type: Report from Study
  Country: US (occurrence: US)
  Receive Date: 20170822
  Receipt Date: 20170822
  Transmission Date: 20171127
  Serious: Yes (Death, Other)
  Sender: FDA-Public Use
  Company Number: US-ALLERGAN-1735252US

PATIENT
  Age: 65 Year
  Sex: Male

DRUGS (1)
  1. NEBIVOLOL HCL 2.5MG TAB (TBD) [Suspect]
     Active Substance: NEBIVOLOL
     Indication: PRODUCT USED FOR UNKNOWN INDICATION

REACTIONS (4)
  - Pneumonia [Unknown]
  - Pyrexia [Unknown]
  - Death [Fatal]
  - Urinary tract infection [Unknown]
